FAERS Safety Report 4861474-5 (Version None)
Quarter: 2005Q4

REPORT INFORMATION
  Report Type: 
  Country: None (occurrence: None)
  Receive Date: 20051129
  Receipt Date: 20050427
  Transmission Date: 20060501
  Serious: Yes (Disabling)
  Sender: FDA-Public Use
  Company Number: WAES 0504USA04777

PATIENT
  Age: 69 Year
  Sex: Female

DRUGS (3)
  1. FOSAMAX [Suspect]
     Indication: OSTEOPENIA
     Dosage: 35 MG/WKY/PO
     Route: 048
     Dates: start: 20010301, end: 20050410
  2. PRAVACHOL [Concomitant]
  3. DIURETIC [Concomitant]

REACTIONS (1)
  - CONSTIPATION [None]
